FAERS Safety Report 9624204 (Version 3)
Quarter: 2013Q4

REPORT INFORMATION
  Report Type: Report from Study
  Country: AU (occurrence: AU)
  Receive Date: 20131015
  Receipt Date: 20131129
  Transmission Date: 20140711
  Serious: Yes (Hospitalization)
  Sender: FDA-Public Use
  Company Number: PHHY2013AU098698

PATIENT
  Age: 26 Year
  Sex: Male

DRUGS (2)
  1. CLOZARIL [Suspect]
     Dosage: 400 MG,
     Dates: start: 20050323
  2. CLOZARIL [Suspect]
     Dosage: UNK
     Dates: end: 20131115

REACTIONS (3)
  - General physical health deterioration [Unknown]
  - Malaise [Unknown]
  - Antipsychotic drug level below therapeutic [Unknown]
